FAERS Safety Report 8557349-0 (Version None)
Quarter: 2012Q3

REPORT INFORMATION
  Report Type: 
  Country: None (occurrence: None)
  Receive Date: 20120801
  Receipt Date: 20120725
  Transmission Date: 20120928
  Serious: Yes (Hospitalization)
  Sender: FDA-Public Use
  Company Number: BE-PFIZER INC-2012181310

PATIENT
  Sex: Female
  Weight: 74 kg

DRUGS (4)
  1. DESOGESTREL AND ETHINYL ESTRADIOL [Concomitant]
     Indication: FOLLICLE-STIMULATING HORMONE DEFICIENCY
  2. DESOGESTREL AND ETHINYL ESTRADIOL [Concomitant]
     Indication: BLOOD LUTEINISING HORMONE DECREASED
     Dosage: UNK
     Dates: start: 20020208
  3. DESMOPRESSIN ACETATE [Concomitant]
     Indication: BLOOD ANTIDIURETIC HORMONE DECREASED
     Dosage: UNK
     Dates: start: 19990715
  4. GENOTROPIN [Suspect]
     Dosage: 0.5 MG, 7/WK
     Route: 058
     Dates: start: 20030113

REACTIONS (1)
  - MALAISE [None]
